FAERS Safety Report 10587571 (Version 2)
Quarter: 2014Q4

REPORT INFORMATION
  Report Type: Spontaneous
  Country: JP (occurrence: JP)
  Receive Date: 20141117
  Receipt Date: 20141120
  Transmission Date: 20150529
  Serious: Yes (Other)
  Sender: FDA-Public Use
  Company Number: JP-TEVA-522408ISR

PATIENT
  Age: 5 Decade
  Sex: Female

DRUGS (5)
  1. CARBOPLATIN. [Suspect]
     Active Substance: CARBOPLATIN
     Indication: ENDOMETRIAL CANCER STAGE IV
     Dosage: CUMULATIVE DOSE DURING TREATMENT: 11700 MG/BODY
     Route: 065
  2. DOCETAXEL. [Suspect]
     Active Substance: DOCETAXEL
     Indication: ENDOMETRIAL CANCER STAGE IV
     Route: 065
  3. PACLITAXEL. [Suspect]
     Active Substance: PACLITAXEL
     Indication: ENDOMETRIAL CANCER STAGE IV
     Dosage: CUMULATIVE DOSE DURING TREATMENT: 2487 MG/BODY
     Route: 065
  4. CISPLATIN. [Suspect]
     Active Substance: CISPLATIN
     Indication: ENDOMETRIAL CANCER STAGE IV
     Dosage: CUMULATIVE DOSE DURING TREATMENT: 558 MG/BODY
     Route: 065
  5. IRINOTECAN [Suspect]
     Active Substance: IRINOTECAN
     Indication: ENDOMETRIAL CANCER STAGE IV
     Route: 065

REACTIONS (1)
  - Acute biphenotypic leukaemia [Unknown]
